FAERS Safety Report 11765855 (Version 1)
Quarter: 2015Q4

REPORT INFORMATION
  Report Type: Spontaneous
  Country: BR (occurrence: BR)
  Receive Date: 20151122
  Receipt Date: 20151122
  Transmission Date: 20160304
  Serious: Yes (Hospitalization)
  Sender: FDA-Public Use
  Company Number: BR-009507513-1511BRA010142

PATIENT
  Sex: Female

DRUGS (3)
  1. MERCILON [Suspect]
     Active Substance: DESOGESTREL\ETHINYL ESTRADIOL
     Indication: CONTRACEPTION
     Dosage: 1 DF, QD
     Route: 048
     Dates: start: 200505, end: 201505
  2. HORMONAL CONTRACEPTIVES (UNSPECIFIED) [Suspect]
     Active Substance: UNSPECIFIED INGREDIENT
     Indication: CONTRACEPTION
     Dosage: UNK
     Dates: start: 2015, end: 20151025
  3. HORMONAL CONTRACEPTIVES (UNSPECIFIED) [Suspect]
     Active Substance: UNSPECIFIED INGREDIENT
     Indication: CONTRACEPTION
     Dosage: UNK
     Dates: start: 201505, end: 2015

REACTIONS (5)
  - Amenorrhoea [Not Recovered/Not Resolved]
  - Drug intolerance [Unknown]
  - Umbilical hernia [Recovered/Resolved]
  - Drug intolerance [Unknown]
  - Umbilical hernia repair [Recovered/Resolved]

NARRATIVE: CASE EVENT DATE: 2013
